FAERS Safety Report 5100172-X (Version None)
Quarter: 2006Q3

REPORT INFORMATION
  Report Type: 
  Country: None (occurrence: None)
  Receive Date: 20060728
  Receipt Date: 20050615
  Transmission Date: 20061208
  Serious: Yes (Hospitalization)
  Sender: FDA-Public Use
  Company Number: ZLBIGIV/05/15/USA

PATIENT
  Age: 55 Year
  Sex: Male
  Weight: 82 kg

DRUGS (10)
  1. CARIMUNE [Suspect]
     Indication: IMMUNODEFICIENCY COMMON VARIABLE
     Dosage: 60 G DAILY IV
     Route: 042
     Dates: start: 20050517, end: 20050517
  2. WELLBUTRIN [Concomitant]
  3. PRILOSEC [Concomitant]
  4. HYDROCODONE BITARTRATE [Concomitant]
  5. MULTIVITAMIN [Concomitant]
  6. CITRICIL [Concomitant]
  7. NORMAL SALINE [Concomitant]
  8. HEP-FLUSH [Concomitant]
  9. SOLU-MEDROL [Concomitant]
  10. ZYRTEC [Concomitant]

REACTIONS (5)
  - HEADACHE [None]
  - MENINGITIS ASEPTIC [None]
  - MUSCULOSKELETAL STIFFNESS [None]
  - NAUSEA [None]
  - VOMITING [None]
